FAERS Safety Report 15061395 (Version 1)
Quarter: 2018Q2

REPORT INFORMATION
  Report Type: Spontaneous
  Country: US (occurrence: US)
  Receive Date: 20180625
  Receipt Date: 20180625
  Transmission Date: 20180711
  Serious: No
  Sender: FDA-Public Use
  Company Number: US-ROCHE-2037310

PATIENT
  Age: 69 Year
  Sex: Male

DRUGS (1)
  1. XELODA [Suspect]
     Active Substance: CAPECITABINE
     Indication: OVARIAN CANCER
     Dosage: TWICE DAILY FOR 14 DAYS, THEN 7 DAYS OFF; ONGOING
     Route: 048
     Dates: start: 20160921

REACTIONS (4)
  - Onychoclasis [Unknown]
  - Off label use [Unknown]
  - Skin hyperpigmentation [Unknown]
  - Intentional product use issue [Unknown]

NARRATIVE: CASE EVENT DATE: 20170508
